FAERS Safety Report 16295715 (Version 2)
Quarter: 2019Q2

REPORT INFORMATION
  Report Type: Spontaneous
  Country: US (occurrence: US)
  Receive Date: 20190509
  Receipt Date: 20190606
  Transmission Date: 20190711
  Serious: No
  Sender: FDA-Public Use
  Company Number: US-SA-2019SA123202

PATIENT

DRUGS (1)
  1. ALPROLIX [Suspect]
     Active Substance: EFTRENONACOG ALFA
     Dosage: 3000 IU, UNK
     Route: 042

REACTIONS (2)
  - Hand fracture [Recovered/Resolved]
  - Sports injury [Recovered/Resolved]

NARRATIVE: CASE EVENT DATE: 20190408
